FAERS Safety Report 10428632 (Version 1)
Quarter: 2014Q3

REPORT INFORMATION
  Report Type: Spontaneous
  Country: CH (occurrence: None)
  Receive Date: 20140829
  Receipt Date: 20140829
  Transmission Date: 20150326
  Serious: Yes (Other)
  Sender: FDA-Public Use
  Company Number: 20140543

PATIENT
  Age: 21 Year
  Sex: Male

DRUGS (4)
  1. AZATHIOPRINE. [Concomitant]
     Active Substance: AZATHIOPRINE
  2. PREDNISOLONE. [Concomitant]
     Active Substance: PREDNISOLONE
  3. FERINJECT [Suspect]
     Active Substance: FERRIC CARBOXYMALTOSE
     Indication: IRON DEFICIENCY ANAEMIA
     Dosage: 1000 MG IN 100 ML NS
     Route: 042
     Dates: start: 20140715, end: 20140715
  4. HYDROXYCOBALAMIN [Concomitant]

REACTIONS (3)
  - Rash [None]
  - Dyspnoea [None]
  - Throat irritation [None]

NARRATIVE: CASE EVENT DATE: 20140715
